FAERS Safety Report 7517622-1 (Version None)
Quarter: 2011Q2

REPORT INFORMATION
  Report Type: 
  Country: None (occurrence: None)
  Receive Date: 20110601
  Receipt Date: 20110527
  Transmission Date: 20111010
  Serious: Yes (Hospitalization)
  Sender: FDA-Public Use
  Company Number: US-GILEAD-2011-0038885

PATIENT
  Sex: Female

DRUGS (4)
  1. LASIX [Concomitant]
  2. LETAIRIS [Suspect]
     Indication: PULMONARY HYPERTENSION
     Route: 048
     Dates: start: 20100720
  3. VENTAVIS [Concomitant]
  4. LETAIRIS [Suspect]
     Indication: SCLERODERMA

REACTIONS (6)
  - DEHYDRATION [None]
  - CONDITION AGGRAVATED [None]
  - GENERAL PHYSICAL HEALTH DETERIORATION [None]
  - DYSPNOEA [None]
  - PULMONARY HYPERTENSION [None]
  - DIZZINESS [None]
